FAERS Safety Report 17686337 (Version 1)
Quarter: 2020Q3

REPORT INFORMATION
  Report Type: Spontaneous
  Country: GB (occurrence: GB)
  Receive Date: 20200420
  Receipt Date: 20200420
  Transmission Date: 20201105
  Serious: Yes (Hospitalization)
  Sender: FDA-Public Use
  Company Number: GB-DEXPHARM-20200310

PATIENT
  Age: 85 Year
  Sex: Female

DRUGS (22)
  1. POLATUZUMAB VEDOTIN. [Suspect]
     Active Substance: POLATUZUMAB VEDOTIN
     Route: 041
  2. ALLOPURINOL. [Concomitant]
     Active Substance: ALLOPURINOL
     Dosage: AFTER CHEMO
     Route: 048
  3. BENDAMUSTINE [Suspect]
     Active Substance: BENDAMUSTINE
     Dosage: 100MG
     Route: 041
  4. ONDANSETRON [Concomitant]
     Active Substance: ONDANSETRON
     Dosage: AFTER CHEMO
     Route: 048
  5. GLYCERYL TRINITRATE [Concomitant]
     Active Substance: NITROGLYCERIN
     Dosage: OR 1MG PRN
     Route: 060
  6. SIMVASTATIN. [Concomitant]
     Active Substance: SIMVASTATIN
     Route: 048
  7. CHLORPHENAMINE [Concomitant]
     Active Substance: CHLORPHENIRAMINE MALEATE
     Dosage: 10MG/1ML
     Route: 041
  8. UMECLIDINIUM BROMIDE [Concomitant]
     Active Substance: UMECLIDINIUM BROMIDE
     Dosage: 65MICROGRAMS/DOSE
     Route: 050
  9. RITUXIMAB. [Suspect]
     Active Substance: RITUXIMAB
     Dosage: 500MG/50ML
     Route: 041
  10. CYCLIZINE [Concomitant]
     Active Substance: CYCLIZINE
     Dosage: PRN
     Route: 048
  11. CLOPIDOGREL [Concomitant]
     Active Substance: CLOPIDOGREL BISULFATE
     Route: 048
  12. HYDROCORTISONE SODIUM SUCCINATE [Concomitant]
     Active Substance: HYDROCORTISONE SODIUM SUCCINATE
     Dosage: SUPPLEMENTARY TO CHEMO
     Route: 041
  13. ACICLOVIR [Concomitant]
     Active Substance: ACYCLOVIR
     Route: 048
  14. NICORANDIL [Concomitant]
     Active Substance: NICORANDIL
     Route: 048
  15. OMEPRAZOLE. [Interacting]
     Active Substance: OMEPRAZOLE
     Route: 048
     Dates: end: 20200218
  16. BISOPROLOL [Concomitant]
     Active Substance: BISOPROLOL
     Route: 048
  17. BUDESONIDE AND FORMOTEROL FUMARATE [Concomitant]
     Active Substance: BUDESONIDE\FORMOTEROL FUMARATE
     Dosage: 200MICROGRAMS/DOSE/6MICROGRAMS/DOSE PRN
     Route: 055
  18. SALBUTAMOL [Concomitant]
     Active Substance: ALBUTEROL
     Dosage: ONE OR TWO DOSES PRN
     Route: 050
  19. ISOSORBIDE MONONITRATE. [Concomitant]
     Active Substance: ISOSORBIDE MONONITRATE
     Dosage: 60G
     Route: 048
  20. COLECALCIFEROL [Concomitant]
     Active Substance: CHOLECALCIFEROL
     Dosage: 400UNIT / 1.5G
     Route: 048
  21. FUROSEMIDE. [Interacting]
     Active Substance: FUROSEMIDE
     Route: 048
  22. PARACETAMOL [Concomitant]
     Active Substance: ACETAMINOPHEN
     Dosage: PRN
     Route: 048

REACTIONS (2)
  - Drug interaction [Unknown]
  - Diarrhoea [Recovering/Resolving]

NARRATIVE: CASE EVENT DATE: 20200218
